FAERS Safety Report 12637426 (Version 1)
Quarter: 2016Q3

REPORT INFORMATION
  Report Type: Spontaneous
  Country: US (occurrence: US)
  Receive Date: 20160809
  Receipt Date: 20160809
  Transmission Date: 20161109
  Serious: No
  Sender: FDA-Public Use
  Company Number: US-BEH-2016061619

PATIENT
  Sex: Female
  Weight: 60 kg

DRUGS (19)
  1. PRIVIGEN [Suspect]
     Active Substance: HUMAN IMMUNOGLOBULIN G
     Route: 042
  2. ATROVENT [Concomitant]
     Active Substance: IPRATROPIUM BROMIDE
  3. ASPIRIN. [Concomitant]
     Active Substance: ASPIRIN
  4. QVAR [Concomitant]
     Active Substance: BECLOMETHASONE DIPROPIONATE
  5. EPIPEN [Concomitant]
     Active Substance: EPINEPHRINE
  6. MIGRANAL [Concomitant]
     Active Substance: DIHYDROERGOTAMINE MESYLATE
  7. POTASSIUM CHLORIDE. [Concomitant]
     Active Substance: POTASSIUM CHLORIDE
  8. TRAMADOL. [Concomitant]
     Active Substance: TRAMADOL
  9. SODIUM CHLORIDE. [Concomitant]
     Active Substance: SODIUM CHLORIDE
  10. FLECTOR [Concomitant]
     Active Substance: DICLOFENAC EPOLAMINE
  11. ACETAMINOPHEN. [Concomitant]
     Active Substance: ACETAMINOPHEN
  12. MONTELUKAST SODIUM. [Concomitant]
     Active Substance: MONTELUKAST SODIUM
  13. BUDESONIDE. [Concomitant]
     Active Substance: BUDESONIDE
  14. ESCITALOPRAM [Concomitant]
     Active Substance: ESCITALOPRAM OXALATE
  15. NORMAL SALINE FLUSH [Concomitant]
     Active Substance: SODIUM CHLORIDE
  16. MELOXICAM. [Concomitant]
     Active Substance: MELOXICAM
  17. GABAPENTIN. [Concomitant]
     Active Substance: GABAPENTIN
  18. DIPHENHYDRAMINE. [Concomitant]
     Active Substance: DIPHENHYDRAMINE
  19. SOLU-CORTEF [Concomitant]
     Active Substance: HYDROCORTISONE SODIUM SUCCINATE

REACTIONS (1)
  - Fatigue [Unknown]
